FAERS Safety Report 6467217-6 (Version None)
Quarter: 2009Q4

REPORT INFORMATION
  Report Type: 
  Country: None (occurrence: None)
  Receive Date: 20091125
  Receipt Date: 20091120
  Transmission Date: 20100525
  Serious: Yes (Hospitalization, Other)
  Sender: FDA-Public Use
  Company Number: KV200900764

PATIENT
  Sex: Female

DRUGS (2)
  1. METOPROLOL SUCCINATE [Suspect]
     Indication: HYPERTENSION
     Dosage: 12.5 MG, QD, ORAL
     Route: 048
     Dates: start: 20080101, end: 20090818
  2. NEUMEROUS CONCOMITANT MEDICATIONS (NOS) [Concomitant]

REACTIONS (30)
  - ABDOMINAL PAIN UPPER [None]
  - ACTIVITIES OF DAILY LIVING IMPAIRED [None]
  - ALOPECIA [None]
  - AMENORRHOEA [None]
  - AMNESIA [None]
  - BALANCE DISORDER [None]
  - BLOOD ALKALINE PHOSPHATASE INCREASED [None]
  - BURNING SENSATION [None]
  - CHAPPED LIPS [None]
  - COGNITIVE DISORDER [None]
  - DEPRESSION [None]
  - DISORIENTATION [None]
  - DISTURBANCE IN ATTENTION [None]
  - DIZZINESS [None]
  - EYE PAIN [None]
  - FATIGUE [None]
  - FLUID RETENTION [None]
  - HEADACHE [None]
  - HEPATOCELLULAR INJURY [None]
  - IMPAIRED WORK ABILITY [None]
  - INTENTIONAL OVERDOSE [None]
  - LIVER DISORDER [None]
  - PAIN IN EXTREMITY [None]
  - PAIN OF SKIN [None]
  - RASH [None]
  - RASH PRURITIC [None]
  - SUICIDE ATTEMPT [None]
  - TINNITUS [None]
  - VERTIGO [None]
  - VISUAL IMPAIRMENT [None]
